FAERS Safety Report 21785996 (Version 3)
Quarter: 2023Q1

REPORT INFORMATION
  Report Type: Spontaneous
  Country: US (occurrence: US)
  Receive Date: 20221228
  Receipt Date: 20230210
  Transmission Date: 20230418
  Serious: No
  Sender: FDA-Public Use
  Company Number: US-BRISTOL-MYERS SQUIBB COMPANY-2022-159524

PATIENT
  Age: 69 Year
  Sex: Male

DRUGS (2)
  1. REVLIMID [Suspect]
     Active Substance: LENALIDOMIDE
     Indication: Product used for unknown indication
     Dosage: FREQ: DAILY FOR 14 DAYS ON 7
     Route: 048
     Dates: start: 202212
  2. REVLIMID [Suspect]
     Active Substance: LENALIDOMIDE
     Dosage: FREQ: DAILY FOR 14 DAYS ON 7
     Route: 048
     Dates: start: 202211

REACTIONS (17)
  - Abdominal pain upper [Unknown]
  - Pruritus [Unknown]
  - Tremor [Unknown]
  - Chills [Unknown]
  - Thirst [Unknown]
  - Fatigue [Unknown]
  - Feeling jittery [Unknown]
  - Pyrexia [Unknown]
  - Off label use [Unknown]
  - Epistaxis [Unknown]
  - Insomnia [Unknown]
  - Headache [Unknown]
  - Constipation [Unknown]
  - Back pain [Unknown]
  - Pelvic pain [Unknown]
  - Paraesthesia [Unknown]
  - Hypoaesthesia [Unknown]

NARRATIVE: CASE EVENT DATE: 20221227
